FAERS Safety Report 14858959 (Version 7)
Quarter: 2022Q1

REPORT INFORMATION
  Report Type: Report from Study
  Country: CO (occurrence: CO)
  Receive Date: 20180508
  Receipt Date: 20220226
  Transmission Date: 20220423
  Serious: Yes (Other)
  Sender: FDA-Public Use
  Company Number: PHHY2018CO077070

PATIENT
  Sex: Male
  Weight: 84 kg

DRUGS (5)
  1. COSENTYX [Suspect]
     Active Substance: SECUKINUMAB
     Indication: Psoriasis
     Dosage: 300 MG, QMO
     Route: 058
     Dates: start: 20161010
  2. LOSARTAN [Suspect]
     Active Substance: LOSARTAN
     Indication: Product used for unknown indication
     Dosage: 50 MG, Q12H
     Route: 065
  3. CARVEDILOL [Suspect]
     Active Substance: CARVEDILOL
     Indication: Product used for unknown indication
     Dosage: 6.25 MG, UNK
     Route: 065
  4. LORAZEPAM [Concomitant]
     Active Substance: LORAZEPAM
     Indication: Sleep disorder
     Dosage: 2 MG, UNKNOWN
     Route: 065
  5. ASPIRIN [Concomitant]
     Active Substance: ASPIRIN
     Indication: Product used for unknown indication
     Dosage: 100 MG, QD
     Route: 065

REACTIONS (10)
  - Coronary artery thrombosis [Recovered/Resolved]
  - Hernia perforation [Unknown]
  - Venous occlusion [Recovered/Resolved]
  - Iliac vein occlusion [Unknown]
  - Inguinal hernia [Unknown]
  - Spinal disorder [Unknown]
  - Faeces discoloured [Recovered/Resolved]
  - Anal incontinence [Unknown]
  - Inflammation [Unknown]
  - Diarrhoea [Recovered/Resolved]
